FAERS Safety Report 24840971 (Version 1)
Quarter: 2025Q1

REPORT INFORMATION
  Report Type: Spontaneous
  Country: US (occurrence: None)
  Receive Date: 20250114
  Receipt Date: 20250114
  Transmission Date: 20250409
  Serious: Yes (Hospitalization)
  Sender: FDA-CTU
  Company Number: None

PATIENT
  Age: 28 Year
  Sex: Female
  Weight: 75.6 kg

DRUGS (3)
  1. OZEMPIC [Suspect]
     Active Substance: SEMAGLUTIDE
     Indication: Diabetes mellitus
     Dates: start: 20240802, end: 20240913
  2. HYDROXYZINE [Concomitant]
     Active Substance: HYDROXYZINE HYDROCHLORIDE
  3. MAGNESIUM GLYCINATE [Concomitant]
     Active Substance: MAGNESIUM GLYCINATE

REACTIONS (13)
  - Anxiety [None]
  - Intrusive thoughts [None]
  - Paraesthesia [None]
  - Dizziness [None]
  - Dizziness [None]
  - Tachycardia [None]
  - Panic disorder [None]
  - Impaired driving ability [None]
  - Agoraphobia [None]
  - Headache [None]
  - Near death experience [None]
  - Hypoaesthesia [None]
  - Loss of personal independence in daily activities [None]

NARRATIVE: CASE EVENT DATE: 20240914
